FAERS Safety Report 7609235-8 (Version None)
Quarter: 2011Q3

REPORT INFORMATION
  Report Type: 
  Country: None (occurrence: None)
  Receive Date: 20110714
  Receipt Date: 20110711
  Transmission Date: 20111222
  Serious: Yes (Hospitalization, Other)
  Sender: FDA-Public Use
  Company Number: US-MERCK-1102USA02275

PATIENT
  Age: 57 Year
  Sex: Female

DRUGS (5)
  1. SIMVASTATIN [Concomitant]
     Route: 065
  2. FOSAMAX [Suspect]
     Indication: BONE LOSS
     Route: 048
     Dates: start: 19960101, end: 20070101
  3. FOSAMAX [Suspect]
     Route: 048
     Dates: start: 20100101, end: 20110101
  4. AMLODIPINE [Concomitant]
     Route: 065
  5. HYDROCHLOROTHIAZIDE [Concomitant]
     Route: 065

REACTIONS (9)
  - FEMUR FRACTURE [None]
  - PAIN IN EXTREMITY [None]
  - BLOOD CHOLESTEROL INCREASED [None]
  - OSTEOPETROSIS [None]
  - DENTAL CARIES [None]
  - BREAST CANCER [None]
  - OSTEOPOROSIS [None]
  - TOOTH DISORDER [None]
  - HYPERTENSION [None]
